FAERS Safety Report 21610737 (Version 1)
Quarter: 2022Q4

REPORT INFORMATION
  Report Type: Spontaneous
  Country: CN (occurrence: None)
  Receive Date: 20221117
  Receipt Date: 20221117
  Transmission Date: 20230112
  Serious: Yes (Other)
  Sender: FDA-Public Use
  Company Number: CN-ROCHE-3217179

PATIENT
  Age: 65 Year
  Sex: Male

DRUGS (26)
  1. XELODA [Suspect]
     Active Substance: CAPECITABINE
     Indication: Metastases to liver
     Route: 048
     Dates: start: 201605, end: 201609
  2. XELODA [Suspect]
     Active Substance: CAPECITABINE
     Indication: Lymphoma
     Route: 048
     Dates: start: 201610, end: 201704
  3. XELODA [Suspect]
     Active Substance: CAPECITABINE
     Route: 048
     Dates: start: 20190516, end: 20190921
  4. XELODA [Suspect]
     Active Substance: CAPECITABINE
     Route: 048
     Dates: start: 201911, end: 202002
  5. AVASTIN [Suspect]
     Active Substance: BEVACIZUMAB
     Indication: Metastases to liver
     Route: 065
     Dates: start: 20200705, end: 20210225
  6. AVASTIN [Suspect]
     Active Substance: BEVACIZUMAB
     Indication: Lymphoma
     Route: 065
     Dates: start: 20210715, end: 20210731
  7. OXALIPLATIN [Concomitant]
     Active Substance: OXALIPLATIN
     Dosage: XELOX REGIMEN
     Dates: start: 201605, end: 201609
  8. OXALIPLATIN [Concomitant]
     Active Substance: OXALIPLATIN
     Dosage: FOLFOX6 REGIMEN
     Dates: start: 20200705, end: 20210225
  9. LEUCOVORIN CALCIUM [Concomitant]
     Active Substance: LEUCOVORIN CALCIUM
     Dosage: FOLFOX6 REGIMEN
     Dates: start: 20200705, end: 20210225
  10. LEUCOVORIN CALCIUM [Concomitant]
     Active Substance: LEUCOVORIN CALCIUM
     Dosage: FOLFIRI REGIMEN
     Dates: start: 20210715, end: 20210731
  11. LEUCOVORIN CALCIUM [Concomitant]
     Active Substance: LEUCOVORIN CALCIUM
     Dosage: FOLFIRI REGIMEN
     Dates: start: 20210817, end: 20211031
  12. LEUCOVORIN CALCIUM [Concomitant]
     Active Substance: LEUCOVORIN CALCIUM
     Dosage: FOLFIRI REGIMEN
     Dates: start: 20211031, end: 20220111
  13. LEUCOVORIN CALCIUM [Concomitant]
     Active Substance: LEUCOVORIN CALCIUM
     Dosage: FOLFIRI REGIMEN
     Dates: start: 20220326, end: 20220529
  14. FLUOROURACIL [Concomitant]
     Active Substance: FLUOROURACIL
     Dosage: FOLFOX6 REGIMEN
     Dates: start: 20200705, end: 20210225
  15. FLUOROURACIL [Concomitant]
     Active Substance: FLUOROURACIL
     Dosage: FOLFIRI REGIMEN
     Dates: start: 20210715, end: 20210731
  16. FLUOROURACIL [Concomitant]
     Active Substance: FLUOROURACIL
     Dosage: FOLFIRI REGIMEN
     Dates: start: 20210817, end: 20211031
  17. FLUOROURACIL [Concomitant]
     Active Substance: FLUOROURACIL
     Dosage: FOLFIRI REGIMEN
     Dates: start: 20211031, end: 20220111
  18. FLUOROURACIL [Concomitant]
     Active Substance: FLUOROURACIL
     Dosage: FOLFIRI REGIMEN
     Dates: start: 20220326, end: 20220529
  19. IRINOTECAN [Concomitant]
     Active Substance: IRINOTECAN
     Dosage: FOLFIRI REGIMEN
     Dates: start: 20210715, end: 20210731
  20. IRINOTECAN [Concomitant]
     Active Substance: IRINOTECAN
     Dosage: FOLFIRI REGIMEN
     Dates: start: 20210817, end: 20211031
  21. IRINOTECAN [Concomitant]
     Active Substance: IRINOTECAN
     Dosage: FOLFIRI REGIMEN
     Dates: start: 20211031, end: 20220111
  22. IRINOTECAN [Concomitant]
     Active Substance: IRINOTECAN
     Dosage: FOLFIRI REGIMEN
     Dates: start: 20220326, end: 20220529
  23. REGORAFENIB [Concomitant]
     Active Substance: REGORAFENIB
     Dosage: THE LOWEST DAILY DOSE IS 80 MG. MAXIMUM DAILY DOSE OF 160 MG.
     Route: 048
     Dates: start: 202103, end: 202107
  24. REGORAFENIB [Concomitant]
     Active Substance: REGORAFENIB
     Route: 048
     Dates: start: 202202, end: 202203
  25. CETUXIMAB [Concomitant]
     Active Substance: CETUXIMAB
     Dates: start: 20211031, end: 20220111
  26. CETUXIMAB [Concomitant]
     Active Substance: CETUXIMAB
     Dates: start: 20220326, end: 20220529

REACTIONS (5)
  - Neurotoxicity [Unknown]
  - Skin toxicity [Unknown]
  - Palmar-plantar erythrodysaesthesia syndrome [Unknown]
  - Proteinuria [Unknown]
  - Myelosuppression [Unknown]
